FAERS Safety Report 16655228 (Version 1)
Quarter: 2019Q3

REPORT INFORMATION
  Report Type: Spontaneous
  Country: US (occurrence: US)
  Receive Date: 20190617
  Receipt Date: 20190617
  Transmission Date: 20191004
  Serious: Yes (Disabling)
  Sender: FDA-Public Use
  Company Number: None

PATIENT
  Sex: Female

DRUGS (10)
  1. BENZTROPINE. [Concomitant]
     Active Substance: BENZTROPINE
  2. OMEPRAZOLE. [Concomitant]
     Active Substance: OMEPRAZOLE
  3. AMBIEN [Concomitant]
     Active Substance: ZOLPIDEM TARTRATE
  4. BANOPHEN [Concomitant]
     Active Substance: DIPHENHYDRAMINE HYDROCHLORIDE
  5. RISPERIDONE. [Concomitant]
     Active Substance: RISPERIDONE
  6. BUPROPION. [Concomitant]
     Active Substance: BUPROPION
  7. BUPROPION. [Suspect]
     Active Substance: BUPROPION
     Indication: DEPRESSION
     Dosage: ?          QUANTITY:1 DF DOSAGE FORM;OTHER FREQUENCY:MORNING;?
     Route: 048
     Dates: start: 201801
  8. COGENTIN [Concomitant]
     Active Substance: BENZTROPINE MESYLATE
  9. ACETAMINOPHEN. [Concomitant]
     Active Substance: ACETAMINOPHEN
  10. DULOXETINE. [Concomitant]
     Active Substance: DULOXETINE

REACTIONS (1)
  - Amnesia [None]
